FAERS Safety Report 9960799 (Version 1)
Quarter: 2014Q1

REPORT INFORMATION
  Report Type: Report from Study
  Country: US (occurrence: US)
  Receive Date: 20140305
  Receipt Date: 20140305
  Transmission Date: 20141002
  Serious: No
  Sender: FDA-Public Use
  Company Number: US-ABBVIE-13P-163-1108364-00

PATIENT
  Sex: Female

DRUGS (4)
  1. HUMIRA [Suspect]
     Indication: CROHN^S DISEASE
     Dates: start: 20130215
  2. LISINOPRIL/HCTZ [Concomitant]
     Indication: BLOOD PRESSURE
     Dosage: 10 MG/12.5 MG DAILY
  3. CARTIA [Concomitant]
     Indication: BLOOD PRESSURE
     Dosage: 180 MG DAILY
  4. DIPHENHYDRAMINE [Concomitant]
     Indication: SLEEP DISORDER THERAPY
     Dosage: 25 MG AT BEDTIME

REACTIONS (2)
  - Gastric disorder [Recovering/Resolving]
  - Nausea [Unknown]
